FAERS Safety Report 22285530 (Version 5)
Quarter: 2024Q4

REPORT INFORMATION
  Report Type: Report from Study
  Country: US (occurrence: US)
  Receive Date: 20230504
  Receipt Date: 20241004
  Transmission Date: 20250115
  Serious: No
  Sender: NOVARTIS
  Company Number: US-002147023-NVSC2023US100145

PATIENT
  Age: 59 Year
  Sex: Female
  Weight: 56.2 kg

DRUGS (3)
  1. ENTRESTO [Suspect]
     Active Substance: SACUBITRIL\VALSARTAN
     Indication: Cardiac failure congestive
     Dosage: UNK
     Route: 065
  2. ENTRESTO [Suspect]
     Active Substance: SACUBITRIL\VALSARTAN
     Indication: Ejection fraction decreased
     Dosage: 1 DOSAGE FORM (97/103 MG)
     Route: 048
     Dates: start: 20220809, end: 20230702
  3. ENTRESTO [Suspect]
     Active Substance: SACUBITRIL\VALSARTAN
     Dosage: UNK, (24/ 26) BID
     Route: 048
     Dates: start: 20230702

REACTIONS (4)
  - Musculoskeletal stiffness [Recovered/Resolved]
  - Frustration tolerance decreased [Recovered/Resolved]
  - Product supply issue [Recovered/Resolved]
  - Hypotension [Recovered/Resolved]

NARRATIVE: CASE EVENT DATE: 20230113
